FAERS Safety Report 20505545 (Version 1)
Quarter: 2022Q1

REPORT INFORMATION
  Report Type: Spontaneous
  Country: US (occurrence: US)
  Receive Date: 20220223
  Receipt Date: 20220223
  Transmission Date: 20220423
  Serious: No
  Sender: FDA-Public Use
  Company Number: US-drreddys-SPO/USA/22/0147079

PATIENT
  Age: 16 Year
  Sex: Male

DRUGS (2)
  1. ZENATANE [Suspect]
     Active Substance: ISOTRETINOIN
     Indication: Acne
     Dosage: RMA ISSUE DATE: 15 OCTOBER 2021 04:41:17 PM, 21 DECEMBER 2021 04:40:43 PM
  2. ZENATANE [Suspect]
     Active Substance: ISOTRETINOIN
     Dosage: RMA ISSUE DATE: 09 AUGUST 2021 05:14:31 PM, 08 SEPTEMBER 2021 06:31:55 PM

REACTIONS (1)
  - Treatment noncompliance [Unknown]
